FAERS Safety Report 4790105-8 (Version None)
Quarter: 2005Q4

REPORT INFORMATION
  Report Type: 
  Country: None (occurrence: None)
  Receive Date: 20051006
  Receipt Date: 20050929
  Transmission Date: 20060501
  Serious: Yes (Death)
  Sender: FDA-Public Use
  Company Number: 200513197FR

PATIENT
  Age: 55 Year
  Sex: Male

DRUGS (2)
  1. TAXOTERE [Suspect]
     Indication: NON-SMALL CELL LUNG CANCER METASTATIC
     Route: 042
     Dates: start: 20050921, end: 20050921
  2. CISPLATIN [Suspect]
     Indication: NON-SMALL CELL LUNG CANCER METASTATIC
     Route: 042
     Dates: start: 20050921, end: 20050921

REACTIONS (4)
  - ACUTE RESPIRATORY DISTRESS SYNDROME [None]
  - DYSPNOEA [None]
  - HYPOXIA [None]
  - PNEUMONITIS [None]
